FAERS Safety Report 8221747-5 (Version None)
Quarter: 2012Q1

REPORT INFORMATION
  Report Type: 
  Country: None (occurrence: None)
  Receive Date: 20120320
  Receipt Date: 20120320
  Transmission Date: 20120608
  Serious: Yes (Hospitalization)
  Sender: FDA-Public Use
  Company Number: None

PATIENT
  Age: 54 Year
  Sex: Female
  Weight: 71.9 kg

DRUGS (2)
  1. TIGECYCLINE [Suspect]
     Indication: BRONCHITIS
     Dosage: 50.0 MG
     Route: 042
     Dates: start: 20120314, end: 20120316
  2. TIGECYCLINE [Suspect]
     Indication: PNEUMONIA
     Dosage: 50.0 MG
     Route: 042
     Dates: start: 20120314, end: 20120316

REACTIONS (3)
  - DRUG PRESCRIBING ERROR [None]
  - IDIOSYNCRATIC DRUG REACTION [None]
  - PANCREATITIS ACUTE [None]
